FAERS Safety Report 6771404-7 (Version None)
Quarter: 2010Q2

REPORT INFORMATION
  Report Type: 
  Country: None (occurrence: None)
  Receive Date: 20100616
  Receipt Date: 20100607
  Transmission Date: 20101027
  Serious: Yes (Other)
  Sender: FDA-Public Use
  Company Number: CA-ASTRAZENECA-2010SE27248

PATIENT
  Age: 48 Year
  Sex: Female
  Weight: 59 kg

DRUGS (12)
  1. CRESTOR [Suspect]
     Route: 048
  2. APO-FLUCONAZOLE [Concomitant]
  3. CLOTRIMAZOLE [Concomitant]
     Route: 061
  4. DOXYCYCLINE [Concomitant]
  5. FOSAVANCE [Concomitant]
  6. HYDROXYETHYLCELLULOSE [Concomitant]
  7. HYDROCORTISONE [Concomitant]
     Route: 061
  8. PROGESTERONE [Concomitant]
  9. SEX HORMONES AND MODULATORS OF THE GENITAL SYSTEM [Concomitant]
     Route: 061
  10. TESTOSTERONE [Concomitant]
     Route: 061
  11. THYROID HORMONES [Concomitant]
  12. VITAMIN E [Concomitant]
     Route: 061

REACTIONS (2)
  - DYSPNOEA [None]
  - INSOMNIA [None]
